FAERS Safety Report 7624678-4 (Version None)
Quarter: 2011Q3

REPORT INFORMATION
  Report Type: 
  Country: None (occurrence: None)
  Receive Date: 20110720
  Receipt Date: 20110715
  Transmission Date: 20111222
  Serious: Yes (Life-Threatening, Hospitalization)
  Sender: FDA-Public Use
  Company Number: US-B.I. PHARMACEUTICALS,INC./RIDGEFIELD-2011-BP-14698BP

PATIENT
  Sex: Female
  Weight: 45.36 kg

DRUGS (16)
  1. PRADAXA [Suspect]
     Indication: RETINAL VEIN OCCLUSION
     Dosage: 150 MG
     Dates: start: 20110501, end: 20110616
  2. PULMICORT [Concomitant]
  3. LEVOTHYROXINE SODIUM [Concomitant]
  4. COLACE [Concomitant]
  5. MILK OF MAGNESIA TAB [Concomitant]
  6. SPIRIVA [Concomitant]
  7. DUONEB [Concomitant]
  8. NORVASC [Concomitant]
  9. PRADAXA [Suspect]
     Indication: ATRIAL FIBRILLATION
  10. LOPRESSOR [Concomitant]
  11. NITROSTAT [Concomitant]
  12. MIRAPEX [Concomitant]
  13. LASIX [Concomitant]
  14. TYLENOL-500 [Concomitant]
  15. MYLANTA [Concomitant]
  16. CELEXA [Concomitant]

REACTIONS (2)
  - GASTROINTESTINAL HAEMORRHAGE [None]
  - HUMERUS FRACTURE [None]
